FAERS Safety Report 8203196-9 (Version None)
Quarter: 2012Q1

REPORT INFORMATION
  Report Type: 
  Country: None (occurrence: None)
  Receive Date: 20120312
  Receipt Date: 20120302
  Transmission Date: 20120608
  Serious: Yes (Hospitalization)
  Sender: FDA-Public Use
  Company Number: US-ASTRAZENECA-2012SE15227

PATIENT
  Age: 60 Year
  Sex: Female

DRUGS (1)
  1. SYMBICORT [Suspect]
     Indication: UPPER RESPIRATORY TRACT INFECTION
     Dosage: 80/4.5 MG
     Route: 055

REACTIONS (2)
  - DRUG DISPENSING ERROR [None]
  - OFF LABEL USE [None]
